FAERS Safety Report 4752351-9 (Version None)
Quarter: 2005Q3

REPORT INFORMATION
  Report Type: 
  Country: None (occurrence: None)
  Receive Date: 20050824
  Receipt Date: 20050824
  Transmission Date: 20060218
  Serious: Yes (Life-Threatening)
  Sender: FDA-Public Use
  Company Number: None

PATIENT
  Age: 51 Year
  Sex: Female
  Weight: 68.4 kg

DRUGS (11)
  1. PACLITAXEL   300 MG /  50 ML     BEDFORD LABS OR MAYNE PHARMA. [Suspect]
     Indication: OVARIAN CANCER
     Dosage: 300 MG   ONCE   IV DRIP
     Route: 041
     Dates: start: 20050517, end: 20050517
  2. FLAGYL [Concomitant]
  3. PERCOCET [Concomitant]
  4. PROTONIX [Concomitant]
  5. COUMADIN [Concomitant]
  6. BENADRYL [Concomitant]
  7. ZOFRAN [Concomitant]
  8. COMPAZINE [Concomitant]
  9. ZANTAC [Concomitant]
  10. ATIVAN [Concomitant]
  11. DECADRON [Concomitant]

REACTIONS (7)
  - CHEST PAIN [None]
  - DYSPNOEA [None]
  - FLUSHING [None]
  - HYPERHIDROSIS [None]
  - INFUSION RELATED REACTION [None]
  - PAIN [None]
  - RESPIRATORY RATE INCREASED [None]
